FAERS Safety Report 25390696 (Version 1)
Quarter: 2025Q2

REPORT INFORMATION
  Report Type: Spontaneous
  Country: US (occurrence: US)
  Receive Date: 20250603
  Receipt Date: 20250603
  Transmission Date: 20250716
  Serious: Yes (Other)
  Sender: BRACCO
  Company Number: US-BRACCO-2025US03398

PATIENT
  Age: 71 Year
  Sex: Female

DRUGS (1)
  1. GADOBENATE DIMEGLUMINE [Suspect]
     Active Substance: GADOBENATE DIMEGLUMINE
     Indication: Magnetic resonance imaging head
     Route: 042
     Dates: start: 20240801, end: 20240801

REACTIONS (2)
  - Electrocardiogram QT prolonged [Unknown]
  - Torsade de pointes [Recovered/Resolved]

NARRATIVE: CASE EVENT DATE: 20240801
